FAERS Safety Report 23878875 (Version 1)
Quarter: 2024Q2

REPORT INFORMATION
  Report Type: Report from Study
  Country: HN (occurrence: HN)
  Receive Date: 20240521
  Receipt Date: 20240521
  Transmission Date: 20240716
  Serious: Yes (Hospitalization)
  Sender: FDA-Public Use
  Company Number: HN-MYLANLABS-2024M1045318

PATIENT
  Age: 68 Year
  Sex: Female
  Weight: 65.76 kg

DRUGS (2)
  1. LIPITOR [Suspect]
     Active Substance: ATORVASTATIN CALCIUM
     Indication: Blood cholesterol increased
     Dosage: 80 MILLIGRAM, QD (ONE TABLET, DAILY)
     Route: 048
     Dates: start: 2023, end: 20240427
  2. CADUET [Suspect]
     Active Substance: AMLODIPINE BESYLATE\ATORVASTATIN CALCIUM
     Indication: Product used for unknown indication
     Dosage: UNK, QD (1 TABLET, DAILY)
     Route: 048
     Dates: start: 20240503

REACTIONS (1)
  - Blood insulin increased [Not Recovered/Not Resolved]

NARRATIVE: CASE EVENT DATE: 20240401
